FAERS Safety Report 8336296 (Version 2)
Quarter: 2015Q2

REPORT INFORMATION
  Report Type: Report from Study
  Country: US (occurrence: US)
  Receive Date: 20120113
  Receipt Date: 20150630
  Transmission Date: 20150821
  Serious: Yes (Death, Other)
  Sender: FDA-Public Use
  Company Number: US-ROCHE-1028761

PATIENT
  Sex: Female

DRUGS (10)
  1. DIOVAN [Concomitant]
     Active Substance: VALSARTAN
  2. LUCENTIS [Suspect]
     Active Substance: RANIBIZUMAB
     Indication: VEIN DISORDER
     Route: 050
     Dates: start: 20090128
  3. WARFARIN [Concomitant]
     Active Substance: WARFARIN
  4. ZYMAR [Concomitant]
     Active Substance: GATIFLOXACIN
  5. TIKOSYN [Concomitant]
     Active Substance: DOFETILIDE
  6. AVASTIN [Suspect]
     Active Substance: BEVACIZUMAB
     Indication: PRODUCT USED FOR UNKNOWN INDICATION
     Route: 065
  7. TRIESENCE [Concomitant]
     Active Substance: TRIAMCINOLONE ACETONIDE
  8. LUCENTIS [Suspect]
     Active Substance: RANIBIZUMAB
     Indication: DIABETIC RETINOPATHY
  9. NABUMETONE. [Concomitant]
     Active Substance: NABUMETONE
  10. VYTORIN [Concomitant]
     Active Substance: EZETIMIBE\SIMVASTATIN

REACTIONS (4)
  - Death [Fatal]
  - Eye irritation [Unknown]
  - Oedema [Unknown]
  - Sensation of foreign body [Unknown]
